FAERS Safety Report 25596739 (Version 2)
Quarter: 2025Q3

REPORT INFORMATION
  Report Type: Spontaneous
  Country: IL (occurrence: IL)
  Receive Date: 20250723
  Receipt Date: 20250930
  Transmission Date: 20251020
  Serious: Yes (Other)
  Sender: ALEXION PHARMACEUTICALS
  Company Number: IL-AstraZeneca-CH-00912640AM

PATIENT
  Sex: Female
  Weight: 71 kg

DRUGS (1)
  1. BUDESONIDE [Suspect]
     Active Substance: BUDESONIDE
     Indication: Chronic obstructive pulmonary disease

REACTIONS (11)
  - Pneumonia [Unknown]
  - COVID-19 [Unknown]
  - Pulmonary function test decreased [Unknown]
  - Cardiac disorder [Unknown]
  - Product dose omission issue [Unknown]
  - Calcium deficiency [Unknown]
  - Weight increased [Unknown]
  - Hypercalciuria [Unknown]
  - Teeth brittle [Unknown]
  - Bone disorder [Unknown]
  - Blood glucose increased [Unknown]

NARRATIVE: CASE EVENT DATE: 20220101
